FAERS Safety Report 25833282 (Version 1)
Quarter: 2025Q3

REPORT INFORMATION
  Report Type: Spontaneous
  Country: US (occurrence: US)
  Receive Date: 20250922
  Receipt Date: 20250922
  Transmission Date: 20251020
  Serious: Yes (Life-Threatening)
  Sender: MALLINCKRODT
  Company Number: US-MALLINCKRODT-MNK202505823

PATIENT
  Sex: Female

DRUGS (4)
  1. NITRIC OXIDE [Suspect]
     Active Substance: NITRIC OXIDE
     Indication: Newborn persistent pulmonary hypertension
     Route: 055
  2. INSULIN BEEF [Concomitant]
     Active Substance: INSULIN BEEF
  3. FENTANYL [Concomitant]
     Active Substance: FENTANYL
  4. VECURONIUM [Concomitant]
     Active Substance: VECURONIUM BROMIDE

REACTIONS (3)
  - Oxygen saturation decreased [Recovered/Resolved]
  - Device failure [Unknown]
  - Product use issue [Unknown]
